FAERS Safety Report 26058951 (Version 1)
Quarter: 2025Q4

REPORT INFORMATION
  Report Type: Spontaneous
  Country: US (occurrence: US)
  Receive Date: 20251118
  Receipt Date: 20251118
  Transmission Date: 20260118
  Serious: No
  Sender: COLLEGIUM PHARMACEUTICAL
  Company Number: US-COLLEGIUM PHARMACEUTICAL, INC.-20250602215

PATIENT

DRUGS (2)
  1. BELBUCA [Suspect]
     Active Substance: BUPRENORPHINE HYDROCHLORIDE
     Indication: Back disorder
     Dosage: 300 MICROGRAM, BID
     Route: 002
     Dates: start: 20250506
  2. BELBUCA [Suspect]
     Active Substance: BUPRENORPHINE HYDROCHLORIDE
     Dosage: 300 MICROGRAM, BID
     Route: 002

REACTIONS (1)
  - Product adhesion issue [None]

NARRATIVE: CASE EVENT DATE: 20250101
